FAERS Safety Report 11885342 (Version 2)
Quarter: 2016Q1

REPORT INFORMATION
  Report Type: Report from Study
  Country: CA (occurrence: CA)
  Receive Date: 20160104
  Receipt Date: 20160112
  Transmission Date: 20160526
  Serious: Yes (Other)
  Sender: FDA-Public Use
  Company Number: CA-ROCHE-1585991

PATIENT
  Age: 58 Year
  Sex: Female
  Weight: 48 kg

DRUGS (6)
  1. TAXOTERE [Suspect]
     Active Substance: DOCETAXEL
     Indication: HER-2 POSITIVE BREAST CANCER
     Route: 065
     Dates: end: 2015
  2. TAXOL [Suspect]
     Active Substance: PACLITAXEL
     Indication: HER-2 POSITIVE BREAST CANCER
     Route: 065
     Dates: end: 201510
  3. PERJETA [Suspect]
     Active Substance: PERTUZUMAB
     Indication: HER-2 POSITIVE BREAST CANCER
     Route: 042
     Dates: start: 20150506
  4. CARBOPLATIN. [Concomitant]
     Active Substance: CARBOPLATIN
  5. HERCEPTIN [Suspect]
     Active Substance: TRASTUZUMAB
     Indication: HER-2 POSITIVE BREAST CANCER
     Route: 042
  6. PERJETA [Suspect]
     Active Substance: PERTUZUMAB
     Route: 042
     Dates: start: 20150528

REACTIONS (13)
  - Headache [Recovered/Resolved]
  - Hypoaesthesia [Unknown]
  - Seizure [Unknown]
  - Malaise [Unknown]
  - Hypotension [Unknown]
  - Weight decreased [Unknown]
  - Nausea [Unknown]
  - Fatigue [Unknown]
  - Constipation [Recovered/Resolved]
  - Paraesthesia [Unknown]
  - Treatment failure [Unknown]
  - Platelet count decreased [Unknown]
  - Dyspnoea [Unknown]

NARRATIVE: CASE EVENT DATE: 20151015
